FAERS Safety Report 22012716 (Version 2)
Quarter: 2023Q1

REPORT INFORMATION
  Report Type: Report from Study
  Country: CN (occurrence: CN)
  Receive Date: 20230220
  Receipt Date: 20230308
  Transmission Date: 20230418
  Serious: Yes (Hospitalization)
  Sender: FDA-Public Use
  Company Number: CN-Taiho-2022Taiho000934

PATIENT
  Age: 64 Year
  Sex: Male
  Weight: 69 kg

DRUGS (9)
  1. TIPIRACIL HYDROCHLORIDE\TRIFLURIDINE [Suspect]
     Active Substance: TIPIRACIL HYDROCHLORIDE\TRIFLURIDINE
     Indication: Rectal cancer
     Dosage: 50MG, BID (CYCLE 1 DAYS 1-5, FROM MORNING)
     Route: 048
     Dates: start: 20220817, end: 20220821
  2. TIPIRACIL HYDROCHLORIDE\TRIFLURIDINE [Suspect]
     Active Substance: TIPIRACIL HYDROCHLORIDE\TRIFLURIDINE
     Dosage: 50 MILLIGRAM, BID (CYCLE 1 DAYS 8-12, FROM MORNING)
     Route: 048
     Dates: start: 20220824, end: 20220828
  3. TIPIRACIL HYDROCHLORIDE\TRIFLURIDINE [Suspect]
     Active Substance: TIPIRACIL HYDROCHLORIDE\TRIFLURIDINE
     Dosage: 50 MILLIGRAM, BID (CYCLE 2 DAYS 1-5, FROM MORNING)
     Route: 048
     Dates: start: 20220914, end: 20220918
  4. TIPIRACIL HYDROCHLORIDE\TRIFLURIDINE [Suspect]
     Active Substance: TIPIRACIL HYDROCHLORIDE\TRIFLURIDINE
     Dosage: 50 MG TWICE DAILY (CYCLE 2 DAYS 8-12, STARTING IN THE MORNING, MISSING ONE DOSE IN THE EVENING OF DA
     Route: 048
     Dates: start: 20220921, end: 20220925
  5. TIPIRACIL HYDROCHLORIDE\TRIFLURIDINE [Suspect]
     Active Substance: TIPIRACIL HYDROCHLORIDE\TRIFLURIDINE
     Dosage: 50 MG TWICE DAILY (CYCLE 3 DAYS 1-5, STARTING IN THE MORNING, MISSING ONE DOSE IN THE EVENING OF DAY
     Route: 048
     Dates: start: 20221025, end: 20221029
  6. TIPIRACIL HYDROCHLORIDE\TRIFLURIDINE [Suspect]
     Active Substance: TIPIRACIL HYDROCHLORIDE\TRIFLURIDINE
     Dosage: 50 MG TWICE DAILY (CYCLE 3 DAYS 8-12, FROM THE MORNING)
     Route: 048
     Dates: start: 20221101, end: 20221105
  7. TIPIRACIL HYDROCHLORIDE\TRIFLURIDINE [Suspect]
     Active Substance: TIPIRACIL HYDROCHLORIDE\TRIFLURIDINE
     Dosage: 50 MILLIGRAM, BID (CYCLE 4 DAYS 1-5, FROM MORNING)
     Route: 048
     Dates: start: 20221208, end: 20221212
  8. TIPIRACIL HYDROCHLORIDE\TRIFLURIDINE [Suspect]
     Active Substance: TIPIRACIL HYDROCHLORIDE\TRIFLURIDINE
     Dosage: 50 MG TWICE DAILY (CYCLE 4, DAYS 8-12, FROM THE MORNING)
     Route: 048
     Dates: start: 20221215, end: 20221219
  9. REGORAFENIB [Concomitant]
     Active Substance: REGORAFENIB
     Indication: Product used for unknown indication
     Dosage: 80
     Route: 048
     Dates: start: 20220817

REACTIONS (3)
  - Proteinuria [Recovering/Resolving]
  - Neutrophil count decreased [Recovered/Resolved]
  - Anaemia [Unknown]

NARRATIVE: CASE EVENT DATE: 20220908
